FAERS Safety Report 9968038 (Version 1)
Quarter: 2014Q1

REPORT INFORMATION
  Report Type: Report from Study
  Country: US (occurrence: US)
  Receive Date: 20140306
  Receipt Date: 20140306
  Transmission Date: 20141002
  Serious: No
  Sender: FDA-Public Use
  Company Number: US-ABBVIE-13P-163-1141302-00

PATIENT
  Age: 42 Year
  Sex: Female
  Weight: 88.98 kg

DRUGS (10)
  1. HUMIRA [Suspect]
     Indication: CROHN^S DISEASE
     Dates: start: 201307, end: 20130830
  2. ACYCLOVIR [Concomitant]
     Indication: ORAL HERPES
  3. AZASAN [Concomitant]
     Indication: PRODUCT USED FOR UNKNOWN INDICATION
  4. DOXYLAMINE [Concomitant]
     Indication: INSOMNIA
  5. IRON [Concomitant]
     Indication: ANAEMIA
  6. FLUOXETINE [Concomitant]
     Indication: DEPRESSION
  7. LORATADINE [Concomitant]
     Indication: HYPERSENSITIVITY
  8. MAGNESIUM [Concomitant]
     Indication: MAGNESIUM DEFICIENCY
  9. MULTIPLE VITAMINS [Concomitant]
     Indication: VITAMIN SUPPLEMENTATION
  10. PREDNISONE [Concomitant]
     Indication: CROHN^S DISEASE

REACTIONS (1)
  - Incorrect dose administered [Recovered/Resolved]
